FAERS Safety Report 5170148-5 (Version None)
Quarter: 2006Q4

REPORT INFORMATION
  Report Type: 
  Country: None (occurrence: None)
  Receive Date: 20061212
  Receipt Date: 20060822
  Transmission Date: 20070319
  Serious: Yes (Death, Hospitalization)
  Sender: FDA-Public Use
  Company Number: US-NOVOPROD-256304

PATIENT
  Age: 82 Year

DRUGS (2)
  1. NOVOSEVEN [Suspect]
     Indication: TRAUMATIC HAEMORRHAGE
  2. WARFARIN SODIUM [Concomitant]
     Indication: ILL-DEFINED DISORDER

REACTIONS (2)
  - INTESTINAL INFARCTION [None]
  - INTESTINAL ISCHAEMIA [None]
